FAERS Safety Report 14712750 (Version 8)
Quarter: 2019Q4

REPORT INFORMATION
  Report Type: Report from Study
  Country: CN (occurrence: CN)
  Receive Date: 20180404
  Receipt Date: 20191118
  Transmission Date: 20200122
  Serious: Yes (Hospitalization)
  Sender: FDA-Public Use
  Company Number: CN-ROCHE-2095785

PATIENT
  Age: 54 Year
  Sex: Female
  Weight: 43 kg

DRUGS (56)
  1. DEXAMETHASONE SODIUM PHOSPHATE. [Concomitant]
     Active Substance: DEXAMETHASONE SODIUM PHOSPHATE
     Indication: HYPERSENSITIVITY
     Route: 042
     Dates: start: 20180301, end: 20180301
  2. OMEPRAZOLE SODIUM [Concomitant]
     Active Substance: OMEPRAZOLE SODIUM
     Route: 065
     Dates: start: 20180329, end: 20180329
  3. VITAMIN C [Concomitant]
     Active Substance: ASCORBIC ACID
     Route: 065
     Dates: start: 20180228, end: 20180228
  4. VITAMIN C [Concomitant]
     Active Substance: ASCORBIC ACID
     Route: 065
     Dates: start: 20180301, end: 20180301
  5. GLUCOSE [Concomitant]
     Active Substance: DEXTROSE
     Route: 065
     Dates: start: 20180317, end: 20180325
  6. METOCLOPRAMIDE DIHYDROCHLORIDE [Concomitant]
     Indication: VOMITING
     Dosage: STOP VOMITING
     Route: 065
     Dates: start: 20180410, end: 20180410
  7. BEVACIZUMAB. [Suspect]
     Active Substance: BEVACIZUMAB
     Indication: OVARIAN CANCER
     Dosage: DATE OF THE MOST DOSE 690 MG OF BEVACIZUMAB PRIOR TO SAE ONSET ON 01/MAR/2018
     Route: 042
     Dates: start: 20180301
  8. DIPHENHYDRAMINE HYDROCHLORIDE. [Concomitant]
     Active Substance: DIPHENHYDRAMINE HYDROCHLORIDE
     Route: 065
     Dates: start: 20180410, end: 20180410
  9. VITAMIN C [Concomitant]
     Active Substance: ASCORBIC ACID
     Route: 065
     Dates: start: 20180327, end: 20180327
  10. GLUCOSE [Concomitant]
     Active Substance: DEXTROSE
     Route: 065
     Dates: start: 20180317, end: 20180325
  11. POTASSIUM CHLORIDE. [Concomitant]
     Active Substance: POTASSIUM CHLORIDE
     Dosage: SUPPLEMENTARY ELECTROLYTE
     Route: 065
     Dates: start: 20180228, end: 20180228
  12. DEXAMETHASONE ACETATE [Concomitant]
     Active Substance: DEXAMETHASONE ACETATE
     Dosage: PREVENT ALLERGIES
     Route: 065
     Dates: start: 20180228, end: 20180301
  13. PROMETHAZINE HYDROCHLORIDE. [Concomitant]
     Active Substance: PROMETHAZINE HYDROCHLORIDE
     Dosage: PREVENT ALLERGIES
     Route: 065
     Dates: start: 20180301, end: 20180301
  14. MUCOPOLYSACCHARIDE POLYSULFATE [Concomitant]
     Route: 065
     Dates: start: 20180228
  15. DIPHENHYDRAMINE HYDROCHLORIDE. [Concomitant]
     Active Substance: DIPHENHYDRAMINE HYDROCHLORIDE
     Dosage: PREVENT ALLERGIES
     Route: 065
     Dates: start: 20180228, end: 20180228
  16. VITAMIN C [Concomitant]
     Active Substance: ASCORBIC ACID
     Route: 065
     Dates: start: 20180327, end: 20180421
  17. POTASSIUM CHLORIDE. [Concomitant]
     Active Substance: POTASSIUM CHLORIDE
     Route: 065
     Dates: start: 20180327, end: 20180421
  18. CLOSTRIDIUM BUTYRICUM [Concomitant]
     Active Substance: CLOSTRIDIUM BUTYRICUM SPORES STRAIN M-55
     Dosage: REGULATES GASTROINTESTINAL FUNCTION
     Route: 065
     Dates: start: 20180327, end: 20180403
  19. BLINDED ATEZOLIZUMAB [Suspect]
     Active Substance: ATEZOLIZUMAB
     Indication: OVARIAN CANCER
     Dosage: DATE OF MOST RECENT DOSE OF ATEZOLIZUMAB/PLACEBO PRIOR TO SAE ONSET: 01/MAR/2018
     Route: 042
     Dates: start: 20180207
  20. DEXAMETHASONE SODIUM PHOSPHATE. [Concomitant]
     Active Substance: DEXAMETHASONE SODIUM PHOSPHATE
     Dosage: PREVENT ALLERGIES
     Route: 030
     Dates: start: 20180301, end: 20180301
  21. METOCLOPRAMIDE DIHYDROCHLORIDE [Concomitant]
     Route: 065
     Dates: start: 20180410, end: 20180412
  22. TROPISETRON HYDROCHLORIDE [Concomitant]
     Active Substance: TROPISETRON HYDROCHLORIDE
     Indication: VOMITING
     Route: 065
     Dates: start: 20180228, end: 20180228
  23. CAFFEIC ACID [Concomitant]
     Active Substance: CAFFEIC ACID
     Route: 065
     Dates: start: 20180302, end: 20180302
  24. DIPHENHYDRAMINE HYDROCHLORIDE. [Concomitant]
     Active Substance: DIPHENHYDRAMINE HYDROCHLORIDE
     Dosage: PREVENT ALLERGIES
     Route: 065
     Dates: start: 20180301, end: 20180301
  25. DIPHENHYDRAMINE HYDROCHLORIDE. [Concomitant]
     Active Substance: DIPHENHYDRAMINE HYDROCHLORIDE
     Dosage: PREVENT ALLERGIES
     Route: 065
     Dates: start: 20180301, end: 20180301
  26. OMEPRAZOLE SODIUM [Concomitant]
     Active Substance: OMEPRAZOLE SODIUM
     Route: 065
     Dates: start: 20180317, end: 20180325
  27. GLUCOSE [Concomitant]
     Active Substance: DEXTROSE
     Route: 065
     Dates: start: 20180228, end: 20180228
  28. POTASSIUM CHLORIDE. [Concomitant]
     Active Substance: POTASSIUM CHLORIDE
     Route: 065
     Dates: start: 20180301, end: 20180301
  29. CIMETIDINE [Concomitant]
     Active Substance: CIMETIDINE
     Route: 065
     Dates: start: 20180301, end: 20180301
  30. DEXAMETHASONE. [Concomitant]
     Active Substance: DEXAMETHASONE
     Route: 048
     Dates: start: 20180228, end: 20180301
  31. VITAMIN B6 [Concomitant]
     Active Substance: PYRIDOXINE HYDROCHLORIDE
     Dosage: VITAMIN SUPPLEMENTATION
     Route: 065
     Dates: start: 20180302, end: 20180302
  32. LIDOCAINE HYDROCHLORIDE. [Concomitant]
     Active Substance: LIDOCAINE HYDROCHLORIDE
     Indication: ANAESTHESIA
     Route: 061
     Dates: start: 20180228, end: 20180228
  33. POVIDONE-IODINE. [Concomitant]
     Active Substance: POVIDONE-IODINE
     Dosage: ASEPTIC
     Route: 065
     Dates: start: 20180209
  34. DEXTRAN [Concomitant]
     Active Substance: DEXTRAN
     Route: 065
     Dates: start: 20180205, end: 20180215
  35. PIPERACILLIN SODIUM;TAZOBACTAM SODIUM [Concomitant]
     Active Substance: PIPERACILLIN SODIUM\TAZOBACTAM SODIUM
     Route: 065
     Dates: start: 20180318, end: 20180319
  36. CAFFEIC ACID [Concomitant]
     Active Substance: CAFFEIC ACID
     Route: 065
     Dates: start: 20180227, end: 20180304
  37. OMEPRAZOLE SODIUM [Concomitant]
     Active Substance: OMEPRAZOLE SODIUM
     Dosage: PROTECT THE STOMACH
     Route: 065
     Dates: start: 20180302, end: 20180302
  38. OMEPRAZOLE SODIUM [Concomitant]
     Active Substance: OMEPRAZOLE SODIUM
     Dosage: PROTECT THE STOMACH
     Route: 065
     Dates: start: 20180228, end: 20180228
  39. VITAMIN C [Concomitant]
     Active Substance: ASCORBIC ACID
     Dosage: VITAMIN SUPPLEMENTATION
     Route: 065
     Dates: start: 20180317, end: 20180325
  40. POTASSIUM CHLORIDE. [Concomitant]
     Active Substance: POTASSIUM CHLORIDE
     Route: 065
     Dates: start: 20180327, end: 20180327
  41. VITAMIN B6 [Concomitant]
     Active Substance: PYRIDOXINE HYDROCHLORIDE
     Route: 065
     Dates: start: 20180301, end: 20180301
  42. INSULIN INJECTION [Concomitant]
     Active Substance: INSULIN NOS
     Indication: BLOOD GLUCOSE DECREASED
     Route: 065
     Dates: start: 20180317, end: 20180325
  43. PACLITAXEL. [Suspect]
     Active Substance: PACLITAXEL
     Indication: OVARIAN CANCER
     Dosage: DATE OF MOST RECENT DOSE OF PACLITAXEL 240 MG PRIOR TO SAE ONSET 01/MAR/2018
     Route: 042
     Dates: start: 20180207
  44. COENZYME Q10 [Concomitant]
     Active Substance: UBIDECARENONE
     Dosage: COENZYME Q10 SODIUM CHLORIDE INJECTION
     Route: 065
     Dates: start: 20180228, end: 20180228
  45. PIPERACILLIN. [Concomitant]
     Active Substance: PIPERACILLIN SODIUM
     Dosage: ANTI-INFECTION
     Route: 065
     Dates: start: 20180318, end: 20180319
  46. CIMETIDINE [Concomitant]
     Active Substance: CIMETIDINE
     Dosage: PROTECT THE STOMACH
     Route: 065
     Dates: start: 20180410, end: 20180410
  47. CIMETIDINE [Concomitant]
     Active Substance: CIMETIDINE
     Dosage: PROTECT THE STOMACH
     Route: 065
     Dates: start: 20180228, end: 20180228
  48. CARBOPLATIN. [Suspect]
     Active Substance: CARBOPLATIN
     Indication: OVARIAN CANCER
     Route: 042
     Dates: start: 20180207
  49. HEPARIN SODIUM. [Concomitant]
     Active Substance: HEPARIN SODIUM
     Route: 065
     Dates: start: 20180302, end: 20180302
  50. OMEPRAZOLE SODIUM [Concomitant]
     Active Substance: OMEPRAZOLE SODIUM
     Route: 065
     Dates: start: 20180327, end: 20180327
  51. GLUCOSE [Concomitant]
     Active Substance: DEXTROSE
     Route: 065
     Dates: start: 20180327, end: 20180327
  52. POTASSIUM CHLORIDE. [Concomitant]
     Active Substance: POTASSIUM CHLORIDE
     Dosage: SUPPLEMENTARY ELECTROLYTE
     Route: 065
     Dates: start: 20180317, end: 20180325
  53. DEXAMETHASONE. [Concomitant]
     Active Substance: DEXAMETHASONE
     Dosage: PREVENT ALLERGIES
     Route: 042
     Dates: start: 20180410, end: 20180410
  54. VITAMIN B6 [Concomitant]
     Active Substance: PYRIDOXINE HYDROCHLORIDE
     Route: 065
     Dates: start: 20180228, end: 20180228
  55. TROPISETRON HYDROCHLORIDE [Concomitant]
     Active Substance: TROPISETRON HYDROCHLORIDE
     Route: 065
     Dates: start: 20180301, end: 20180301
  56. DEXTRAN [Concomitant]
     Active Substance: DEXTRAN
     Dosage: DISPERSION TABLETS, ENRICH THE BLOOD
     Route: 065
     Dates: start: 20180211

REACTIONS (1)
  - Intestinal obstruction [Recovered/Resolved]

NARRATIVE: CASE EVENT DATE: 20180317
